FAERS Safety Report 7715472-4 (Version None)
Quarter: 2011Q3

REPORT INFORMATION
  Report Type: 
  Country: None (occurrence: None)
  Receive Date: 20110810
  Receipt Date: 20110606
  Transmission Date: 20111222
  Serious: Yes (Other)
  Sender: FDA-Public Use
  Company Number: 1000019555

PATIENT
  Age: 49 Year
  Sex: Female

DRUGS (12)
  1. OXYCONTIN (OXYCODONE HYDROCHLORIDE) (OXYCODONE HYDROCHLORIDE) [Concomitant]
  2. MVI (MVI) (MVI) [Concomitant]
  3. SAVELLA [Suspect]
     Indication: FIBROMYALGIA
     Dosage: ORAL
     Route: 048
     Dates: start: 20100805
  4. LYRICA [Concomitant]
  5. NEXIUM [Concomitant]
  6. SAVELLA [Suspect]
     Indication: FIBROMYALGIA
     Dosage: 200 MG (100 MG, 2 IN 1 D), ORAL
     Route: 048
     Dates: end: 20110105
  7. ATENOLOL [Concomitant]
  8. PROZAC (FLUOXETINE) ( FLUOXETINE) [Concomitant]
  9. LORATADINE (LORATADINE) (LORATADINE) [Concomitant]
  10. XANAX XR (ALPRAZOLAM) (ALPRAZOLAM) [Concomitant]
  11. KCL (POTASSIUM CHLORIDE) (POTASSIUM CHLORIDE) [Concomitant]
  12. TRILEPTAL (OXCARBAZEPINE) (OXCARBAZEPINE) [Concomitant]

REACTIONS (5)
  - BLOOD ALKALINE PHOSPHATASE INCREASED [None]
  - ASPARTATE AMINOTRANSFERASE INCREASED [None]
  - ALANINE AMINOTRANSFERASE INCREASED [None]
  - NAUSEA [None]
  - VOMITING [None]
